FAERS Safety Report 9083782 (Version 1)
Quarter: 2013Q1

REPORT INFORMATION
  Report Type: Report from Study
  Country: US (occurrence: US)
  Receive Date: 20130131
  Receipt Date: 20130131
  Transmission Date: 20140127
  Serious: No
  Sender: FDA-Public Use
  Company Number: US-ABBOTT-12P-163-0991379-00

PATIENT
  Age: 60 Year
  Sex: Female

DRUGS (4)
  1. HUMIRA [Suspect]
     Indication: RHEUMATOID ARTHRITIS
  2. HUMIRA [Suspect]
  3. ALEVE [Concomitant]
     Indication: INFLAMMATION
     Dosage: 3 TABS DAILY
  4. IMITREX [Concomitant]
     Indication: MIGRAINE

REACTIONS (6)
  - Pruritus [Not Recovered/Not Resolved]
  - Pruritus [Not Recovered/Not Resolved]
  - Rash papular [Not Recovered/Not Resolved]
  - Migraine [Not Recovered/Not Resolved]
  - Inflammation [Not Recovered/Not Resolved]
  - Oedema peripheral [Not Recovered/Not Resolved]
